FAERS Safety Report 16522738 (Version 1)
Quarter: 2019Q3

REPORT INFORMATION
  Report Type: Other
  Country: DE (occurrence: DE)
  Receive Date: 20190703
  Receipt Date: 20190703
  Transmission Date: 20191004
  Serious: No
  Sender: FDA-Public Use
  Company Number: DE-LUPIN PHARMACEUTICALS INC.-2018-07806

PATIENT
  Age: 62 Year
  Sex: Male
  Weight: 103 kg

DRUGS (2)
  1. ATORVASTATIN [Suspect]
     Active Substance: ATORVASTATIN
     Indication: LOW DENSITY LIPOPROTEIN INCREASED
     Dosage: UNK
     Route: 048
     Dates: start: 201706, end: 2018
  2. SIMVASTATIN. [Suspect]
     Active Substance: SIMVASTATIN
     Indication: LOW DENSITY LIPOPROTEIN INCREASED
     Dosage: UNK
     Route: 048
     Dates: start: 2014, end: 2018

REACTIONS (1)
  - Myalgia [Recovered/Resolved]
